FAERS Safety Report 6056604-6 (Version None)
Quarter: 2009Q1

REPORT INFORMATION
  Report Type: 
  Country: None (occurrence: None)
  Receive Date: 20090126
  Receipt Date: 20090126
  Transmission Date: 20090719
  Serious: No
  Sender: FDA-Public Use
  Company Number: None

PATIENT
  Sex: Female

DRUGS (2)
  1. EFFEXOR [Suspect]
     Indication: MAJOR DEPRESSION
     Dosage: BID PO
     Route: 048
     Dates: start: 20090108
  2. EFFEXOR [Suspect]
     Indication: MAJOR DEPRESSION
     Dosage: BID PO
     Route: 048
     Dates: start: 20090121

REACTIONS (2)
  - RASH [None]
  - URTICARIA [None]
